FAERS Safety Report 5203570-9 (Version None)
Quarter: 2007Q1

REPORT INFORMATION
  Report Type: 
  Country: None (occurrence: None)
  Receive Date: 20070110
  Receipt Date: 20070104
  Transmission Date: 20070707
  Serious: Yes (Hospitalization)
  Sender: FDA-Public Use
  Company Number: PL-GLAXOSMITHKLINE-B0452417A

PATIENT
  Age: 67 Year
  Sex: Female

DRUGS (2)
  1. AUGMENTIN '125' [Suspect]
     Dosage: 1G TWICE PER DAY
     Route: 048
     Dates: start: 20060902, end: 20060909
  2. BISOPROLOL FUMARATE [Concomitant]
     Route: 065

REACTIONS (2)
  - UPPER RESPIRATORY TRACT INFLAMMATION [None]
  - URTICARIA [None]
